FAERS Safety Report 20170342 (Version 2)
Quarter: 2021Q4

REPORT INFORMATION
  Report Type: Spontaneous
  Country: JP (occurrence: JP)
  Receive Date: 20211210
  Receipt Date: 20211229
  Transmission Date: 20220303
  Serious: Yes (Other)
  Sender: FDA-Public Use
  Company Number: JP-OTSUKA-2021_042477

PATIENT
  Age: 85 Year
  Sex: Female

DRUGS (1)
  1. SAMSCA [Suspect]
     Active Substance: TOLVAPTAN
     Indication: Product used for unknown indication
     Dosage: 7.5MG UNK
     Route: 065

REACTIONS (2)
  - Renal impairment [Recovered/Resolved]
  - Hypernatraemia [Recovered/Resolved]
